FAERS Safety Report 22047488 (Version 2)
Quarter: 2024Q1

REPORT INFORMATION
  Report Type: Spontaneous
  Country: FR (occurrence: FR)
  Receive Date: 20230301
  Receipt Date: 20240318
  Transmission Date: 20240409
  Serious: Yes (Hospitalization)
  Sender: FDA-Public Use
  Company Number: FR-ROCHE-3294450

PATIENT
  Age: 83 Year
  Sex: Female

DRUGS (14)
  1. METHYLPREDNISOLONE [Suspect]
     Active Substance: METHYLPREDNISOLONE
     Indication: Non-Hodgkin^s lymphoma
     Route: 065
     Dates: start: 201307
  2. METHYLPREDNISOLONE [Suspect]
     Active Substance: METHYLPREDNISOLONE
     Route: 065
  3. MOTILIUM [Suspect]
     Active Substance: DOMPERIDONE
     Indication: Product used for unknown indication
     Route: 065
     Dates: start: 20130814, end: 20130815
  4. BENDAMUSTINE HYDROCHLORIDE [Suspect]
     Active Substance: BENDAMUSTINE HYDROCHLORIDE
     Indication: B-cell lymphoma
     Dosage: CYCLIC (2 IN 1 MONTH)
     Route: 042
     Dates: start: 20130703
  5. BENDAMUSTINE HYDROCHLORIDE [Suspect]
     Active Substance: BENDAMUSTINE HYDROCHLORIDE
     Dosage: ON 01/AUG/2013,RECEIVED MOST RECENT DOSE
     Route: 042
     Dates: start: 20130731, end: 20130801
  6. BACTRIM [Suspect]
     Active Substance: SULFAMETHOXAZOLE\TRIMETHOPRIM
     Indication: Product used for unknown indication
     Route: 048
     Dates: start: 20130704, end: 20130819
  7. MABTHERA [Suspect]
     Active Substance: RITUXIMAB
     Indication: Non-Hodgkin^s lymphoma
     Route: 041
     Dates: start: 20130703
  8. MABTHERA [Suspect]
     Active Substance: RITUXIMAB
     Route: 041
     Dates: start: 20130731, end: 20130731
  9. CEFUROXIME [Suspect]
     Active Substance: CEFUROXIME
     Indication: Pyrexia
     Route: 065
     Dates: start: 20130818
  10. CIPROFLOXACIN [Suspect]
     Active Substance: CIPROFLOXACIN
     Indication: Pyrexia
     Route: 048
     Dates: start: 20130818, end: 20130819
  11. EBASTINE [Concomitant]
     Active Substance: EBASTINE
     Indication: Face oedema
     Route: 065
     Dates: start: 20130802
  12. ATARAX [Concomitant]
     Active Substance: HYDROXYZINE HYDROCHLORIDE
     Indication: Product used for unknown indication
     Route: 065
  13. FUROSEMIDE [Concomitant]
     Active Substance: FUROSEMIDE
     Indication: Product used for unknown indication
     Route: 065
     Dates: start: 20130801
  14. TAGAMET [Concomitant]
     Active Substance: CIMETIDINE
     Indication: Product used for unknown indication
     Route: 065

REACTIONS (7)
  - Toxic skin eruption [Recovered/Resolved]
  - Febrile neutropenia [Recovering/Resolving]
  - Pancytopenia [Recovering/Resolving]
  - Rash maculo-papular [Unknown]
  - Leukopenia [Unknown]
  - Prescribed underdose [Unknown]
  - Agranulocytosis [Recovered/Resolved]

NARRATIVE: CASE EVENT DATE: 20130703
